FAERS Safety Report 16853697 (Version 1)
Quarter: 2019Q3

REPORT INFORMATION
  Report Type: Spontaneous
  Country: GB (occurrence: GB)
  Receive Date: 20190926
  Receipt Date: 20190926
  Transmission Date: 20191005
  Serious: Yes (Other)
  Sender: FDA-Public Use
  Company Number: GB-AUROBINDO-AUR-APL-2019-061965

PATIENT
  Age: 41 Year
  Sex: Female
  Weight: 63 kg

DRUGS (2)
  1. LEVOTHYROXINE. [Concomitant]
     Active Substance: LEVOTHYROXINE
     Indication: HYPOTHYROIDISM
     Dosage: UNK, 100/125MCG
     Route: 048
     Dates: start: 2013
  2. TERBINAFINE. [Suspect]
     Active Substance: TERBINAFINE
     Indication: TINEA PEDIS
     Dosage: 250 MILLIGRAM
     Route: 048
     Dates: start: 20190716, end: 20190807

REACTIONS (3)
  - Ageusia [Not Recovered/Not Resolved]
  - Taste disorder [Not Recovered/Not Resolved]
  - Urticaria [Not Recovered/Not Resolved]

NARRATIVE: CASE EVENT DATE: 20190726
